FAERS Safety Report 6568650-4 (Version None)
Quarter: 2010Q1

REPORT INFORMATION
  Report Type: 
  Country: None (occurrence: None)
  Receive Date: 20100203
  Receipt Date: 20100121
  Transmission Date: 20100710
  Serious: Yes (Other)
  Sender: FDA-Public Use
  Company Number: PHHY2010AT04992

PATIENT
  Age: 67 Year
  Sex: Male

DRUGS (3)
  1. BROMOCRIPTINE MESYLATE [Suspect]
     Indication: PARKINSON'S DISEASE
  2. LEVODOPA [Suspect]
     Indication: PARKINSON'S DISEASE
  3. ANTIBIOTICS [Concomitant]

REACTIONS (3)
  - ACCIDENTAL OVERDOSE [None]
  - HYPERSEXUALITY [None]
  - PENILE OEDEMA [None]
